FAERS Safety Report 15201269 (Version 1)
Quarter: 2018Q3

REPORT INFORMATION
  Report Type: Spontaneous
  Country: US (occurrence: US)
  Receive Date: 20180726
  Receipt Date: 20180726
  Transmission Date: 20181010
  Serious: No
  Sender: FDA-Public Use
  Company Number: US-BAYER-2018-135001

PATIENT

DRUGS (1)
  1. MIRALAX [Suspect]
     Active Substance: POLYETHYLENE GLYCOL 3350
     Indication: GASTROINTESTINAL DISORDER
     Dosage: UNK, QD ( EVERY HALF HOUR)
     Route: 065

REACTIONS (5)
  - Frequent bowel movements [Unknown]
  - Off label use [Unknown]
  - Fatigue [Unknown]
  - Product use issue [Unknown]
  - Asthenia [Unknown]
